FAERS Safety Report 8996342 (Version 1)
Quarter: 2013Q1

REPORT INFORMATION
  Report Type: Report from Study
  Country: DE (occurrence: DE)
  Receive Date: 20130104
  Receipt Date: 20130104
  Transmission Date: 20140127
  Serious: Yes (Life-Threatening, Disabling, Other)
  Sender: FDA-Public Use
  Company Number: DE-BRISTOL-MYERS SQUIBB COMPANY-16874711

PATIENT
  Age: 50 Year
  Sex: Female
  Weight: 71.6 kg

DRUGS (5)
  1. ETOPOSIDE [Suspect]
     Indication: ACUTE MYELOID LEUKAEMIA
     Dates: start: 20120718, end: 20120724
  2. GEMTUZUMAB OZOGAMICIN [Suspect]
     Indication: ACUTE MYELOID LEUKAEMIA
     Dates: start: 20120718, end: 20120718
  3. IDARUBICIN [Suspect]
     Indication: ACUTE MYELOID LEUKAEMIA
     Dosage: EVERY 2 DAYS
     Dates: start: 20120718, end: 20120722
  4. CYTARABINE [Suspect]
     Indication: ACUTE MYELOID LEUKAEMIA
     Dates: start: 20120718, end: 20120724
  5. TRETINOIN [Suspect]
     Indication: ACUTE MYELOID LEUKAEMIA
     Dosage: ATRA?10MG 3-2-3
     Dates: start: 20120723, end: 20120725

REACTIONS (2)
  - Sepsis [Recovered/Resolved]
  - Necrosis [Recovered/Resolved with Sequelae]
